FAERS Safety Report 15560611 (Version 3)
Quarter: 2018Q4

REPORT INFORMATION
  Report Type: Spontaneous
  Country: CN (occurrence: CN)
  Receive Date: 20181029
  Receipt Date: 20181123
  Transmission Date: 20190205
  Serious: Yes (Hospitalization)
  Sender: FDA-Public Use
  Company Number: CN-ARALEZ PHARMACEUTICALS R+D INC.-2018-ARA-002521

PATIENT
  Age: 61 Year
  Sex: Female

DRUGS (2)
  1. BYETTA [Suspect]
     Active Substance: EXENATIDE
     Indication: DIABETES MELLITUS
     Dosage: 10 ?G, BID
     Route: 058
     Dates: start: 20180711
  2. METOPROLOL SUCCINATE. [Suspect]
     Active Substance: METOPROLOL SUCCINATE
     Indication: BLOOD PRESSURE ABNORMAL
     Dosage: 95 MG HALF A TABLET PER DAY
     Route: 048
     Dates: start: 2018

REACTIONS (5)
  - Diabetes mellitus inadequate control [Unknown]
  - Weight loss poor [Unknown]
  - Pain in extremity [Recovering/Resolving]
  - Retinal disorder [Unknown]
  - Blood glucose increased [Unknown]
